FAERS Safety Report 9164994 (Version 1)
Quarter: 2013Q1

REPORT INFORMATION
  Report Type: Spontaneous
  Country: US (occurrence: US)
  Receive Date: 20130315
  Receipt Date: 20130315
  Transmission Date: 20140127
  Serious: Yes (Hospitalization)
  Sender: FDA-Public Use
  Company Number: US-BAYER-2013-030460

PATIENT
  Age: 22 Year
  Sex: Female

DRUGS (5)
  1. YAZ [Suspect]
  2. YASMIN [Suspect]
  3. GIANVI [Suspect]
  4. NEXIUM [Concomitant]
  5. IRON SULFATE [Concomitant]
     Indication: IRON DEFICIENCY ANAEMIA

REACTIONS (3)
  - Pulmonary embolism [None]
  - Transverse sinus thrombosis [None]
  - Cerebral infarction [None]
